FAERS Safety Report 6187998-9 (Version None)
Quarter: 2009Q2

REPORT INFORMATION
  Report Type: 
  Country: None (occurrence: None)
  Receive Date: 20090511
  Receipt Date: 20090511
  Transmission Date: 20091009
  Serious: Yes (Other)
  Sender: FDA-Public Use
  Company Number: None

PATIENT
  Age: 36 Year
  Sex: Female
  Weight: 55.3388 kg

DRUGS (2)
  1. CYMBALTA [Suspect]
     Indication: ANXIETY
     Dosage: 60MG DAILY PO
     Route: 048
     Dates: start: 20090301, end: 20090501
  2. CYMBALTA [Suspect]
     Indication: DEPRESSION
     Dosage: 60MG DAILY PO
     Route: 048
     Dates: start: 20090301, end: 20090501

REACTIONS (4)
  - BEDRIDDEN [None]
  - FEELING ABNORMAL [None]
  - HANGOVER [None]
  - MOTION SICKNESS [None]
